FAERS Safety Report 6376462-X (Version None)
Quarter: 2009Q3

REPORT INFORMATION
  Report Type: 
  Country: None (occurrence: None)
  Receive Date: 20090921
  Receipt Date: 20090908
  Transmission Date: 20100115
  Serious: Yes (Hospitalization)
  Sender: FDA-Public Use
  Company Number: DSJ-2009-10322

PATIENT
  Age: 77 Year
  Sex: Male

DRUGS (6)
  1. OLMESARTAN MEDOXOMIL [Suspect]
     Indication: ESSENTIAL HYPERTENSION
     Dosage: 10 MG (10 MG,1 IN 1 D),PER ORAL ; 20 MG (20 MG,1 IN 1 D),PER ORAL
     Route: 048
     Dates: start: 20061223, end: 20070206
  2. OLMESARTAN MEDOXOMIL [Suspect]
     Indication: ESSENTIAL HYPERTENSION
     Dosage: 10 MG (10 MG,1 IN 1 D),PER ORAL ; 20 MG (20 MG,1 IN 1 D),PER ORAL
     Route: 048
     Dates: start: 20070207
  3. ADALAT CC [Concomitant]
  4. ACTOS (PIOGLITAZONE) (PIOGLITAZONE) [Concomitant]
  5. FERROMIA (FERROUS CITRATE) (FERROUS CITRATE) [Concomitant]
  6. BAYCARON (MEFRUSIDE) (MEFRUSIDE) [Concomitant]

REACTIONS (1)
  - ALTERED STATE OF CONSCIOUSNESS [None]
